FAERS Safety Report 8792728 (Version 5)
Quarter: 2013Q3

REPORT INFORMATION
  Report Type: Spontaneous
  Country: US (occurrence: US)
  Receive Date: 20120918
  Receipt Date: 20130827
  Transmission Date: 20140515
  Serious: Yes (Hospitalization, Disabling, Other)
  Sender: FDA-Public Use
  Company Number: US-009507513-1201USA02549

PATIENT
  Sex: Female
  Weight: 61.22 kg

DRUGS (2)
  1. FOSAMAX [Suspect]
     Indication: OSTEOPENIA
     Dosage: 70 MG, QW
     Route: 048
     Dates: start: 200103, end: 200604
  2. FOSAMAX [Suspect]
     Indication: OSTEOPOROSIS

REACTIONS (42)
  - Femur fracture [Not Recovered/Not Resolved]
  - Intramedullary rod insertion [Unknown]
  - Pneumonia [Recovering/Resolving]
  - Bone density decreased [Not Recovered/Not Resolved]
  - Presbyacusis [Unknown]
  - Meniscus removal [Unknown]
  - Depression [Unknown]
  - Anxiety [Unknown]
  - Fear of falling [Unknown]
  - Tooth extraction [Unknown]
  - Cataract [Unknown]
  - Cataract [Unknown]
  - Contusion [Unknown]
  - Intestinal polypectomy [Unknown]
  - Large intestine polyp [Unknown]
  - Tinnitus [Unknown]
  - Cerumen impaction [Recovered/Resolved]
  - Insomnia [Recovered/Resolved]
  - Pollakiuria [Unknown]
  - Adverse drug reaction [Unknown]
  - Dyspnoea [Unknown]
  - Memory impairment [Unknown]
  - Motion sickness [Unknown]
  - Sciatica [Unknown]
  - Meniscus injury [Unknown]
  - Carotid artery disease [Unknown]
  - Hepatic steatosis [Unknown]
  - Cholelithiasis [Unknown]
  - Trigger finger [Unknown]
  - Synovial cyst [Unknown]
  - Rhinitis [Unknown]
  - Ecchymosis [Unknown]
  - Fall [Unknown]
  - Limb injury [Unknown]
  - Nerve compression [Recovering/Resolving]
  - Appendicectomy [Unknown]
  - Musculoskeletal chest pain [Unknown]
  - Drug hypersensitivity [Unknown]
  - Back pain [Unknown]
  - Constipation [Unknown]
  - Dyspepsia [Recovered/Resolved]
  - Flatulence [Unknown]
